FAERS Safety Report 9142564 (Version 3)
Quarter: 2013Q1

REPORT INFORMATION
  Report Type: Report from Study
  Country: US (occurrence: US)
  Receive Date: 20130306
  Receipt Date: 20130326
  Transmission Date: 20140127
  Serious: No
  Sender: FDA-Public Use
  Company Number: US-JNJFOC-20130300460

PATIENT
  Age: 29 Year
  Sex: Male
  Weight: 84.7 kg

DRUGS (3)
  1. SIMPONI [Suspect]
     Route: 058
  2. SIMPONI [Suspect]
     Indication: COLITIS ULCERATIVE
     Route: 058
     Dates: start: 20081002
  3. FLONASE [Concomitant]
     Route: 045

REACTIONS (1)
  - Basal cell carcinoma [Recovered/Resolved]
